FAERS Safety Report 25659121 (Version 2)
Quarter: 2025Q3

REPORT INFORMATION
  Report Type: Spontaneous
  Country: US (occurrence: US)
  Receive Date: 20250808
  Receipt Date: 20250808
  Transmission Date: 20251020
  Serious: No
  Sender: BOEHRINGER INGELHEIM
  Company Number: US-Komodo Health-a23aa000009K3z3AAC

PATIENT
  Sex: Female

DRUGS (1)
  1. CYLTEZO [Suspect]
     Active Substance: ADALIMUMAB-ADBM
     Indication: Product used for unknown indication

REACTIONS (4)
  - Device malfunction [Unknown]
  - Injection site haemorrhage [Unknown]
  - Injection site laceration [Unknown]
  - Inappropriate schedule of product administration [Unknown]
